FAERS Safety Report 17994582 (Version 1)
Quarter: 2020Q3

REPORT INFORMATION
  Report Type: Spontaneous
  Country: US (occurrence: US)
  Receive Date: 20200708
  Receipt Date: 20200708
  Transmission Date: 20201103
  Serious: Yes (Other)
  Sender: FDA-Public Use
  Company Number: None

PATIENT
  Age: 36 Year
  Sex: Female
  Weight: 60.75 kg

DRUGS (4)
  1. CIPROFLOXACIN HCL 500 MG TAB [Suspect]
     Active Substance: CIPROFLOXACIN HYDROCHLORIDE
     Indication: URINARY TRACT INFECTION
     Dosage: ?          QUANTITY:1 TABLET(S);?
     Route: 048
     Dates: start: 20200618, end: 20200621
  2. VITAMIN D [Concomitant]
     Active Substance: VITAMIN D NOS
  3. LEVOTHYROXINE 112MCG [Concomitant]
     Active Substance: LEVOTHYROXINE
  4. MIRENA [Concomitant]
     Active Substance: LEVONORGESTREL

REACTIONS (6)
  - Neuropathy peripheral [None]
  - Peripheral swelling [None]
  - Arthralgia [None]
  - Nausea [None]
  - Headache [None]
  - Anxiety [None]

NARRATIVE: CASE EVENT DATE: 20200622
